FAERS Safety Report 8535127-6 (Version None)
Quarter: 2012Q3

REPORT INFORMATION
  Report Type: 
  Country: None (occurrence: None)
  Receive Date: 20120724
  Receipt Date: 20120717
  Transmission Date: 20120928
  Serious: Yes (Hospitalization, Other)
  Sender: FDA-Public Use
  Company Number: GR-PFIZER INC-2012171687

PATIENT
  Age: 42 Year
  Sex: Male

DRUGS (1)
  1. CLINDAMYCIN HCL [Suspect]
     Indication: INFLAMMATION OF WOUND
     Route: 048

REACTIONS (3)
  - OSTEOMYELITIS [None]
  - DRUG INEFFECTIVE [None]
  - EXTRADURAL ABSCESS [None]
